FAERS Safety Report 8947231 (Version 2)
Quarter: 2015Q1

REPORT INFORMATION
  Report Type: Report from Study
  Country: FR (occurrence: FR)
  Receive Date: 20121205
  Receipt Date: 20150122
  Transmission Date: 20150721
  Serious: Yes (Death, Hospitalization, Other)
  Sender: FDA-Public Use
  Company Number: FR-ROCHE-1163480

PATIENT
  Age: 79 Year
  Sex: Female

DRUGS (5)
  1. RITUXIMAB [Suspect]
     Active Substance: RITUXIMAB
     Dosage: D15
     Route: 042
     Dates: start: 20080528
  2. CORTANCYL [Concomitant]
     Active Substance: PREDNISONE
     Dosage: DAILY
     Route: 065
  3. RITUXIMAB [Suspect]
     Active Substance: RITUXIMAB
     Indication: RHEUMATOID ARTHRITIS
     Dosage: D1
     Route: 042
     Dates: start: 20080516
  4. ABATACEPT [Suspect]
     Active Substance: ABATACEPT
     Indication: PRODUCT USED FOR UNKNOWN INDICATION
     Route: 065
  5. LEFLUNOMIDE. [Concomitant]
     Active Substance: LEFLUNOMIDE
     Dosage: DAILY (ONLY FOR THE FIRST INFUSION)
     Route: 065

REACTIONS (10)
  - Arrhythmia [Fatal]
  - Atrial fibrillation [Fatal]
  - Pathological fracture [Unknown]
  - Herpes zoster [Recovered/Resolved]
  - Bronchopneumonia [Fatal]
  - Back pain [Not Recovered/Not Resolved]
  - Dermatitis allergic [Recovered/Resolved]
  - Fracture [Unknown]
  - Infection [Unknown]
  - Perforated ulcer [Unknown]

NARRATIVE: CASE EVENT DATE: 20090827
